FAERS Safety Report 12621640 (Version 1)
Quarter: 2016Q3

REPORT INFORMATION
  Report Type: Spontaneous
  Country: US (occurrence: US)
  Receive Date: 20160804
  Receipt Date: 20160804
  Transmission Date: 20161109
  Serious: No
  Sender: FDA-Public Use
  Company Number: US-TARO-2016TAR00568

PATIENT
  Sex: Female

DRUGS (1)
  1. FLUOCINONIDE OINTMENT USP 0.05% [Suspect]
     Active Substance: FLUOCINONIDE
     Indication: ECZEMA
     Dosage: UNK, TWICE
     Dates: start: 20160614, end: 20160614

REACTIONS (10)
  - Dyspnoea [Unknown]
  - Contusion [Not Recovered/Not Resolved]
  - Erythema [Recovering/Resolving]
  - Scab [Not Recovered/Not Resolved]
  - Sensation of foreign body [Unknown]
  - Skin irritation [Unknown]
  - Dry throat [Unknown]
  - Skin burning sensation [Recovering/Resolving]
  - Skin hyperpigmentation [Not Recovered/Not Resolved]
  - Eczema [Unknown]

NARRATIVE: CASE EVENT DATE: 201606
